FAERS Safety Report 14022067 (Version 1)
Quarter: 2017Q3

REPORT INFORMATION
  Report Type: Spontaneous
  Country: GB (occurrence: GB)
  Receive Date: 20170928
  Receipt Date: 20170928
  Transmission Date: 20171128
  Serious: Yes (Death)
  Sender: FDA-Public Use
  Company Number: GB-ACTELION-A-US2017-159122

PATIENT
  Age: 49 Year
  Sex: Male

DRUGS (4)
  1. BOSENTAN. [Concomitant]
     Active Substance: BOSENTAN
     Dosage: UNK
     Dates: start: 201103
  2. VENTAVIS [Suspect]
     Active Substance: ILOPROST
     Indication: PULMONARY HYPERTENSION
     Dosage: 5 MCG, 7ID
     Route: 055
     Dates: start: 201707, end: 20170918
  3. BOSENTAN. [Concomitant]
     Active Substance: BOSENTAN
     Dosage: UNK
     Dates: start: 201103
  4. SILDENAFIL. [Concomitant]
     Active Substance: SILDENAFIL
     Dosage: UNK
     Dates: start: 201203

REACTIONS (3)
  - Death [Fatal]
  - Malaise [Unknown]
  - Vomiting [Unknown]

NARRATIVE: CASE EVENT DATE: 20170918
